FAERS Safety Report 13329343 (Version 2)
Quarter: 2017Q2

REPORT INFORMATION
  Report Type: Spontaneous
  Country: JP (occurrence: JP)
  Receive Date: 20170313
  Receipt Date: 20170406
  Transmission Date: 20170830
  Serious: Yes (Other)
  Sender: FDA-Public Use
  Company Number: JP-BRISTOL-MYERS SQUIBB COMPANY-BMS-2017-016837

PATIENT
  Sex: Female

DRUGS (2)
  1. ABILIFY [Suspect]
     Active Substance: ARIPIPRAZOLE
     Indication: SCHIZOPHRENIA
     Dosage: 8 MG, UNK
     Route: 048
  2. ABILIFY [Suspect]
     Active Substance: ARIPIPRAZOLE
     Indication: PRODUCT USED FOR UNKNOWN INDICATION
     Dosage: 3 MG, UNK
     Route: 048

REACTIONS (10)
  - Neck pain [Not Recovered/Not Resolved]
  - Somnolence [Not Recovered/Not Resolved]
  - Mental impairment [Unknown]
  - Thinking abnormal [Not Recovered/Not Resolved]
  - Road traffic accident [Unknown]
  - Sudden onset of sleep [Unknown]
  - Amnesia [Not Recovered/Not Resolved]
  - Personality change [Not Recovered/Not Resolved]
  - Weight increased [Unknown]
  - Akathisia [Unknown]
